FAERS Safety Report 17559818 (Version 1)
Quarter: 2020Q1

REPORT INFORMATION
  Report Type: Spontaneous
  Country: FR (occurrence: FR)
  Receive Date: 20200319
  Receipt Date: 20200319
  Transmission Date: 20200409
  Serious: Yes (Hospitalization)
  Sender: FDA-Public Use
  Company Number: FR-SA-2020SA065591

PATIENT
  Age: 69 Year
  Sex: Female
  Weight: 90 kg

DRUGS (11)
  1. ZYMAD [Concomitant]
     Active Substance: CHOLECALCIFEROL
  2. DUPHALAC [Concomitant]
     Active Substance: LACTULOSE
  3. ZOLPIDEM [Concomitant]
     Active Substance: ZOLPIDEM TARTRATE
  4. FUMAFER [Concomitant]
     Active Substance: FERROUS FUMARATE
  5. LEVOTHYROX [Concomitant]
     Active Substance: LEVOTHYROXINE
  6. IRBESARTAN. [Suspect]
     Active Substance: IRBESARTAN
     Indication: HYPERTENSION
     Dosage: 150 MG
     Route: 048
     Dates: start: 20190925, end: 20191007
  7. AMLODIPINE [Suspect]
     Active Substance: AMLODIPINE BESYLATE
     Indication: HYPERTENSION
     Dosage: 10 MG
     Route: 048
     Dates: start: 20190925, end: 20191007
  8. OLANZAPINE. [Concomitant]
     Active Substance: OLANZAPINE
  9. CODEINE PHOSPHATE;PARACETAMOL [Concomitant]
     Active Substance: ACETAMINOPHEN\CODEINE PHOSPHATE
  10. FUROSEMIDE. [Concomitant]
     Active Substance: FUROSEMIDE
  11. MIRTAZAPINE. [Concomitant]
     Active Substance: MIRTAZAPINE

REACTIONS (2)
  - Pruritus [Recovered/Resolved]
  - Rash maculo-papular [Recovered/Resolved]

NARRATIVE: CASE EVENT DATE: 20191005
